FAERS Safety Report 23722265 (Version 1)
Quarter: 2024Q2

REPORT INFORMATION
  Report Type: Report from Study
  Country: BR (occurrence: BR)
  Receive Date: 20240409
  Receipt Date: 20240409
  Transmission Date: 20240716
  Serious: Yes (Other)
  Sender: FDA-Public Use
  Company Number: BR-002147023-NVSC2024BR040313

PATIENT
  Sex: Female
  Weight: 73 kg

DRUGS (7)
  1. KISQALI [Suspect]
     Active Substance: RIBOCICLIB
     Indication: Breast cancer
     Dosage: 3 DOSAGE FORM, QD
     Route: 048
     Dates: start: 2023
  2. KISQALI [Suspect]
     Active Substance: RIBOCICLIB
     Indication: Metastases to lung
     Dosage: UNK
     Route: 065
  3. KISQALI [Suspect]
     Active Substance: RIBOCICLIB
     Dosage: 3 DOSAGE FORM, QD (3 TABLETS PER DAY)
     Route: 065
     Dates: start: 20240330
  4. LETROZOLE [Suspect]
     Active Substance: LETROZOLE
     Indication: Breast cancer
     Dosage: 1 DOSAGE FORM, QD
     Route: 048
     Dates: start: 2023
  5. LETROZOLE [Suspect]
     Active Substance: LETROZOLE
     Indication: Metastases to lung
  6. SIMVASTATIN [Concomitant]
     Active Substance: SIMVASTATIN
     Indication: Blood cholesterol increased
     Dosage: 1 DOSAGE FORM, QD (STARTED SEVERAL YEARS AGO, (SHE WAS UNABLE TO INFORM THE MANUFACTURER)
     Route: 048
  7. CIPROFIBRATE [Concomitant]
     Active Substance: CIPROFIBRATE
     Indication: Blood triglycerides increased
     Dosage: 1 DOSAGE FORM, QD (SHE WAS UNABLE TO INFORM THE MANUFACTURER, SHE WILL USE IT FOR 3 MONTHS)
     Route: 048
     Dates: start: 202302

REACTIONS (10)
  - Immunodeficiency [Recovered/Resolved]
  - Malaise [Recovered/Resolved]
  - Nausea [Not Recovered/Not Resolved]
  - Vomiting [Not Recovered/Not Resolved]
  - Illness [Recovered/Resolved]
  - Influenza [Recovered/Resolved]
  - Pyrexia [Recovered/Resolved]
  - Sluggishness [Unknown]
  - Abdominal discomfort [Unknown]
  - Dyspepsia [Unknown]

NARRATIVE: CASE EVENT DATE: 20230101
